FAERS Safety Report 7060971-4 (Version None)
Quarter: 2010Q4

REPORT INFORMATION
  Report Type: 
  Country: None (occurrence: None)
  Receive Date: 20101026
  Receipt Date: 20101014
  Transmission Date: 20110411
  Serious: Yes (Other)
  Sender: FDA-Public Use
  Company Number: US-BAYER-201037229NA

PATIENT
  Sex: Male

DRUGS (2)
  1. TRASYLOL [Suspect]
     Indication: CORONARY ARTERY BYPASS
     Dates: start: 20011001, end: 20011001
  2. TRASYLOL [Suspect]
     Dates: start: 20031001, end: 20031001

REACTIONS (9)
  - ANHEDONIA [None]
  - ANXIETY [None]
  - DEPRESSION [None]
  - EMOTIONAL DISTRESS [None]
  - FEAR [None]
  - INJURY [None]
  - PAIN [None]
  - RENAL FAILURE [None]
  - RENAL FAILURE ACUTE [None]
